FAERS Safety Report 25659938 (Version 1)
Quarter: 2025Q3

REPORT INFORMATION
  Report Type: Spontaneous
  Country: US (occurrence: US)
  Receive Date: 20250808
  Receipt Date: 20250808
  Transmission Date: 20251020
  Serious: No
  Sender: NEUROCRINE BIOSCIENCES
  Company Number: US-NEUROCRINE BIOSCIENCES INC.-2025NBI09902

PATIENT

DRUGS (1)
  1. CRENESSITY [Suspect]
     Active Substance: CRINECERFONT
     Indication: Adrenogenital syndrome
     Route: 048

REACTIONS (3)
  - Abdominal pain upper [Unknown]
  - Myalgia [Unknown]
  - Arthralgia [Unknown]
